FAERS Safety Report 6509545-1 (Version None)
Quarter: 2009Q4

REPORT INFORMATION
  Report Type: 
  Country: None (occurrence: None)
  Receive Date: 20091222
  Receipt Date: 20091214
  Transmission Date: 20100525
  Serious: Yes (Other)
  Sender: FDA-Public Use
  Company Number: AU-ROCHE-674409

PATIENT
  Sex: Female

DRUGS (4)
  1. PEGASYS [Suspect]
     Dosage: DOSE: 1 DOSE (UNSPECIFIED)
     Route: 065
     Dates: start: 20090707
  2. DIAZEPAM [Concomitant]
  3. SERENACE [Concomitant]
  4. HRT [Concomitant]

REACTIONS (3)
  - CONFUSIONAL STATE [None]
  - GRAND MAL CONVULSION [None]
  - LOSS OF CONSCIOUSNESS [None]
